FAERS Safety Report 16189539 (Version 1)
Quarter: 2019Q2

REPORT INFORMATION
  Report Type: Spontaneous
  Country: FR (occurrence: FR)
  Receive Date: 20190412
  Receipt Date: 20190412
  Transmission Date: 20190711
  Serious: Yes (Disabling, Other)
  Sender: FDA-Public Use
  Company Number: FR-009507513-2005-133162-NL

PATIENT
  Age: 37 Year
  Sex: Female
  Weight: 55 kg

DRUGS (1)
  1. IMPLANON [Suspect]
     Active Substance: ETONOGESTREL
     Indication: CONTRACEPTION
     Dosage: CONTINUING: NO
     Dates: start: 200202, end: 200209

REACTIONS (3)
  - Breast tenderness [Unknown]
  - Menstruation irregular [Unknown]
  - Ulnar nerve palsy [Recovered/Resolved with Sequelae]

NARRATIVE: CASE EVENT DATE: 2002
